FAERS Safety Report 16223128 (Version 2)
Quarter: 2019Q2

REPORT INFORMATION
  Report Type: Spontaneous
  Country: US (occurrence: US)
  Receive Date: 20190422
  Receipt Date: 20190517
  Transmission Date: 20190711
  Serious: No
  Sender: FDA-Public Use
  Company Number: US-SA-2019SA110062

PATIENT
  Sex: Female

DRUGS (1)
  1. DUPIXENT [Suspect]
     Active Substance: DUPILUMAB
     Indication: ASTHMA
     Dosage: 300 MG, QOW
     Route: 058
     Dates: start: 20190201

REACTIONS (6)
  - Weight increased [Unknown]
  - Sleep disorder [Unknown]
  - Faeces discoloured [Unknown]
  - Bowel movement irregularity [Unknown]
  - Hot flush [Unknown]
  - Faeces soft [Unknown]

NARRATIVE: CASE EVENT DATE: 2019
